FAERS Safety Report 8773289 (Version 1)
Quarter: 2012Q4

REPORT INFORMATION
  Report Type: 
  Country: IT (occurrence: IT)
  Receive Date: 20120907
  Receipt Date: 20120907
  Transmission Date: 20130627
  Serious: Yes (Life-Threatening, Hospitalization)
  Sender: FDA-Public Use
  Company Number: PHHY2012IT077174

PATIENT
  Age: 68 Year
  Sex: Female

DRUGS (5)
  1. OXALIPLATIN [Suspect]
     Indication: COLON CANCER METASTATIC
     Route: 042
     Dates: start: 20061231, end: 20120618
  2. BEVACIZUMAB [Concomitant]
  3. CETUXIMAB [Concomitant]
  4. FOLIC ACID [Concomitant]
  5. FLUOROURACIL [Concomitant]

REACTIONS (6)
  - Autoimmune thrombocytopenia [Unknown]
  - Petechiae [Unknown]
  - Proteinuria [Unknown]
  - Gingival bleeding [Unknown]
  - Epistaxis [Unknown]
  - Haematuria [Unknown]
